FAERS Safety Report 9227806 (Version 1)
Quarter: 2013Q2

REPORT INFORMATION
  Report Type: Not Available
  Country: AU (occurrence: AU)
  Receive Date: 20130412
  Receipt Date: 20130412
  Transmission Date: 20140414
  Serious: Yes (Hospitalization)
  Sender: FDA-Public Use
  Company Number: AU-PURDUE-USA-2013-0100779

PATIENT
  Sex: Female

DRUGS (3)
  1. OXYCONTIN TABLETS [Suspect]
     Indication: BACK PAIN
     Dosage: 10 MG, DAILY
     Route: 048
  2. ENDONE [Suspect]
     Indication: BACK PAIN
     Dosage: UNKNOWN
     Route: 048
  3. ANTIBIOTIC /00011701/ [Suspect]
     Indication: URINARY TRACT INFECTION
     Dosage: UNKNOWN
     Route: 065

REACTIONS (2)
  - Mental disorder [Unknown]
  - Anxiety [Unknown]
